FAERS Safety Report 9888180 (Version 2)
Quarter: 2014Q2

REPORT INFORMATION
  Report Type: Report from Study
  Country: US (occurrence: US)
  Receive Date: 20140211
  Receipt Date: 20140509
  Transmission Date: 20141212
  Serious: Yes (Other)
  Sender: FDA-Public Use
  Company Number: US-JNJFOC-20140202342

PATIENT
  Age: 60 Year
  Sex: Male
  Weight: 81.65 kg

DRUGS (2)
  1. REMICADE [Suspect]
     Indication: CROHN^S DISEASE
     Dosage: 2ND DOSE
     Route: 042
     Dates: start: 201311
  2. REMICADE [Suspect]
     Indication: CROHN^S DISEASE
     Dosage: 3RD LOADING DOSE AT WEEK 4 INSTEAD OF WEEK 6
     Route: 042
     Dates: start: 20131216, end: 201404

REACTIONS (2)
  - Retinal detachment [Recovered/Resolved]
  - Drug ineffective [Not Recovered/Not Resolved]
